FAERS Safety Report 24741270 (Version 2)
Quarter: 2024Q4

REPORT INFORMATION
  Report Type: Report from Study
  Country: CA (occurrence: CA)
  Receive Date: 20241217
  Receipt Date: 20241220
  Transmission Date: 20250115
  Serious: Yes (Other)
  Sender: CELLTRION
  Company Number: CA-CELLTRION INC.-2024CA030424

PATIENT

DRUGS (4)
  1. ADALIMUMAB-AATY [Suspect]
     Active Substance: ADALIMUMAB-AATY
     Indication: Crohn^s disease
     Dosage: DOUBLE DOSE
     Route: 058
  2. ADALIMUMAB-AATY [Suspect]
     Active Substance: ADALIMUMAB-AATY
     Dosage: 40 MG EVERY 2 WEEKS
     Route: 058
     Dates: start: 20241128
  3. ADALIMUMAB-AATY [Suspect]
     Active Substance: ADALIMUMAB-AATY
     Dosage: DOUBLE DOSE/ 80 MG Q2 WEEKS
     Route: 058
     Dates: start: 2024
  4. CIPROFLOXACIN [Concomitant]
     Active Substance: CIPROFLOXACIN
     Indication: Fistula

REACTIONS (6)
  - Loss of consciousness [Unknown]
  - Dizziness [Recovering/Resolving]
  - Product use issue [Unknown]
  - Overdose [Unknown]
  - Therapy interrupted [Unknown]
  - Product supply issue [Unknown]

NARRATIVE: CASE EVENT DATE: 20241127
